FAERS Safety Report 7208992-2 (Version None)
Quarter: 2011Q1

REPORT INFORMATION
  Report Type: 
  Country: None (occurrence: None)
  Receive Date: 20110104
  Receipt Date: 20101221
  Transmission Date: 20110831
  Serious: Yes (Other)
  Sender: FDA-Public Use
  Company Number: PHHY2010KR86601

PATIENT
  Age: 65 Year
  Sex: Female

DRUGS (1)
  1. ALENDRONATE SODIUM [Suspect]
     Dosage: UNK

REACTIONS (2)
  - FRACTURE DISPLACEMENT [None]
  - FEMUR FRACTURE [None]
